FAERS Safety Report 24129251 (Version 2)
Quarter: 2024Q3

REPORT INFORMATION
  Report Type: Spontaneous
  Country: US (occurrence: US)
  Receive Date: 20240723
  Receipt Date: 20240724
  Transmission Date: 20241017
  Serious: Yes (Hospitalization, Other)
  Sender: BRISTOL MYERS SQUIBB
  Company Number: US-BRISTOL-MYERS SQUIBB COMPANY-2024-116064

PATIENT
  Age: 71 Year
  Sex: Male

DRUGS (1)
  1. REVLIMID [Suspect]
     Active Substance: LENALIDOMIDE
     Indication: Plasma cell myeloma
     Dosage: TAKE 1 CAPSULE WHOLE BY MOUTH WITH WATER EVERY DAY ON DAYS 1-21 OF A 28 DAY CYCLE. DO NOT BREAK, CHE
     Route: 048

REACTIONS (2)
  - Pneumonia [Recovered/Resolved]
  - Spinal disorder [Recovered/Resolved]

NARRATIVE: CASE EVENT DATE: 20240601
